FAERS Safety Report 4872864-9 (Version None)
Quarter: 2006Q1

REPORT INFORMATION
  Report Type: 
  Country: None (occurrence: None)
  Receive Date: 20060105
  Receipt Date: 20020220
  Transmission Date: 20060701
  Serious: No
  Sender: FDA-Public Use
  Company Number: US-BRISTOL-MYERS SQUIBB COMPANY-11734548

PATIENT
  Age: 57 Year
  Sex: Female
  Weight: 67 kg

DRUGS (1)
  1. SERZONE [Suspect]
     Indication: PANIC ATTACK
     Route: 048
     Dates: start: 20010222

REACTIONS (2)
  - DRUG INEFFECTIVE [None]
  - PANIC ATTACK [None]
